FAERS Safety Report 13817546 (Version 4)
Quarter: 2017Q4

REPORT INFORMATION
  Report Type: Spontaneous
  Country: DE (occurrence: DE)
  Receive Date: 20170731
  Receipt Date: 20171010
  Transmission Date: 20180320
  Serious: Yes (Hospitalization)
  Sender: FDA-Public Use
  Company Number: DE-SA-2017SA136748

PATIENT
  Age: 73 Year
  Sex: Female
  Weight: 75 kg

DRUGS (8)
  1. LANTUS [Concomitant]
     Active Substance: INSULIN GLARGINE
     Indication: DIABETES MELLITUS
     Route: 065
  2. METFORMIN [Concomitant]
     Active Substance: METFORMIN HYDROCHLORIDE
     Indication: DIABETES MELLITUS
     Dosage: 1/2 DF, 1/2 DF, 1/2 DF /DAY
     Route: 048
  3. APIDRA SOLOSTAR [Concomitant]
     Active Substance: INSULIN GLULISINE
  4. SOLOSTAR [Suspect]
     Active Substance: DEVICE
     Indication: DIABETES MELLITUS
     Dates: start: 20170601, end: 20170608
  5. JANUVIA [Concomitant]
     Active Substance: SITAGLIPTIN PHOSPHATE
     Indication: DIABETES MELLITUS
     Dosage: STRENGTH: 100 MG
     Route: 048
  6. SOLOSTAR [Concomitant]
     Active Substance: DEVICE
  7. ATORVASTATIN [Concomitant]
     Active Substance: ATORVASTATIN
     Indication: HYPERLIPIDAEMIA
     Route: 048
  8. APIDRA SOLOSTAR [Suspect]
     Active Substance: INSULIN GLULISINE
     Indication: DIABETES MELLITUS
     Route: 058
     Dates: start: 20170601, end: 20170608

REACTIONS (6)
  - Dyspnoea [Recovered/Resolved]
  - Pruritus [Recovered/Resolved]
  - Fear [Recovered/Resolved]
  - Hypersensitivity [Recovered/Resolved]
  - Rash generalised [Recovered/Resolved]
  - Throat tightness [Recovered/Resolved]

NARRATIVE: CASE EVENT DATE: 20170605
